FAERS Safety Report 10112801 (Version 2)
Quarter: 2015Q1

REPORT INFORMATION
  Report Type: Other
  Country: None (occurrence: US)
  Receive Date: 20140425
  Receipt Date: 20150217
  Transmission Date: 20150720
  Serious: Yes (Hospitalization, Other)
  Sender: FDA-Public Use
  Company Number: US-GSKPPD-2014GSK012426

PATIENT
  Age: 64 Year
  Sex: Male

DRUGS (7)
  1. ASPIRIN EC [Concomitant]
     Active Substance: ASPIRIN
  2. AMIODARONE [Concomitant]
     Active Substance: AMIODARONE
  3. ENALAPRIL [Concomitant]
     Active Substance: ENALAPRIL
  4. NORVASC [Concomitant]
     Active Substance: AMLODIPINE BESYLATE
  5. FUROSEMIDE. [Concomitant]
     Active Substance: FUROSEMIDE
  6. COUMADINE [Concomitant]
     Active Substance: WARFARIN SODIUM
  7. AVANDIA [Suspect]
     Active Substance: ROSIGLITAZONE MALEATE
     Indication: DIABETES MELLITUS
     Dosage: DATES OF AVANDIA USE COULD NOT BE CONFIRMED IN RECORDS REVIEWED.
     Route: 048

REACTIONS (1)
  - Coronary artery bypass [Recovered/Resolved]

NARRATIVE: CASE EVENT DATE: 20060426
